FAERS Safety Report 12893842 (Version 9)
Quarter: 2019Q1

REPORT INFORMATION
  Report Type: Report from Study
  Country: JP (occurrence: JP)
  Receive Date: 20161028
  Receipt Date: 20190307
  Transmission Date: 20190417
  Serious: Yes (Other)
  Sender: FDA-Public Use
  Company Number: JP-OTSUKA-2016_015148

PATIENT
  Age: 46 Year
  Sex: Female
  Weight: 40 kg

DRUGS (4)
  1. TOLVAPTAN [Suspect]
     Active Substance: TOLVAPTAN
     Indication: CONGENITAL CYSTIC KIDNEY DISEASE
     Dosage: 60MG, B.I.D.
     Route: 048
     Dates: start: 20160202, end: 20160620
  2. TOLVAPTAN [Suspect]
     Active Substance: TOLVAPTAN
     Dosage: 22.5MG, DIVIDED 2 DOSES (EACH DOSE UNKNOWN)
     Route: 048
     Dates: start: 20170620, end: 20170724
  3. URSO [Concomitant]
     Active Substance: URSODIOL
     Indication: PROPHYLAXIS
     Dosage: 150 MG, QD
     Route: 048
     Dates: end: 20170622
  4. URSO [Concomitant]
     Active Substance: URSODIOL
     Dosage: 300 MG, QD
     Route: 048
     Dates: start: 20170623, end: 20171023

REACTIONS (3)
  - Hepatic function abnormal [Recovered/Resolved]
  - Blood bilirubin increased [Recovered/Resolved]
  - Hepatic enzyme increased [Recovered/Resolved]

NARRATIVE: CASE EVENT DATE: 20160620
